FAERS Safety Report 8812150 (Version 3)
Quarter: 2014Q3

REPORT INFORMATION
  Report Type: Report from Study
  Country: US (occurrence: US)
  Receive Date: 20120927
  Receipt Date: 20140911
  Transmission Date: 20150326
  Serious: Yes (Death, Other)
  Sender: FDA-Public Use
  Company Number: US-ROCHE-1128749

PATIENT
  Sex: Male
  Weight: 79.3 kg

DRUGS (11)
  1. AVASTIN [Suspect]
     Active Substance: BEVACIZUMAB
     Indication: LUNG NEOPLASM MALIGNANT
     Route: 065
     Dates: start: 20050623
  2. AVASTIN [Suspect]
     Active Substance: BEVACIZUMAB
     Dosage: 1185 MG/DOSE
     Route: 065
     Dates: start: 20051013
  3. AVASTIN [Suspect]
     Active Substance: BEVACIZUMAB
     Route: 042
  4. AVASTIN [Suspect]
     Active Substance: BEVACIZUMAB
     Dosage: 1185 MG/DOSE
     Route: 065
     Dates: start: 20051222
  5. CARBOPLATIN. [Concomitant]
     Active Substance: CARBOPLATIN
  6. AVASTIN [Suspect]
     Active Substance: BEVACIZUMAB
     Dosage: 1185 MG/DOSE
     Route: 065
     Dates: start: 20051201
  7. AVASTIN [Suspect]
     Active Substance: BEVACIZUMAB
     Indication: METASTASES TO LIVER
     Dosage: 1185 MG/DOSE
     Route: 065
     Dates: start: 20050714
  8. AVASTIN [Suspect]
     Active Substance: BEVACIZUMAB
     Route: 065
     Dates: start: 20051103
  9. AVASTIN [Suspect]
     Active Substance: BEVACIZUMAB
     Route: 065
     Dates: start: 20051223
  10. TAXOL [Concomitant]
     Active Substance: PACLITAXEL
  11. AVASTIN [Suspect]
     Active Substance: BEVACIZUMAB
     Indication: NON-SMALL CELL LUNG CANCER
     Dosage: 1185 MG/DOSE
     Route: 065
     Dates: start: 20050915

REACTIONS (4)
  - Fatigue [Unknown]
  - Disease progression [Fatal]
  - Asthenia [Unknown]
  - Pericardial effusion [Unknown]
